APPROVED DRUG PRODUCT: PREDNISONE
Active Ingredient: PREDNISONE
Strength: 1MG
Dosage Form/Route: TABLET, DELAYED RELEASE;ORAL
Application: A219477 | Product #001
Applicant: DR REDDYS LABORATORIES LTD
Approved: Oct 1, 2025 | RLD: No | RS: Yes | Type: RX